FAERS Safety Report 8381291-1 (Version None)
Quarter: 2012Q2

REPORT INFORMATION
  Report Type: 
  Country: None (occurrence: None)
  Receive Date: 20120523
  Receipt Date: 20120511
  Transmission Date: 20120825
  Serious: Yes (Death)
  Sender: FDA-Public Use
  Company Number: CZ-CELGENEUS-217-21880-12051346

PATIENT
  Sex: Male

DRUGS (5)
  1. FRAXIPARINE [Concomitant]
     Route: 065
     Dates: start: 20110701
  2. FENTANYL-100 [Concomitant]
     Route: 065
     Dates: start: 20110701
  3. REVLIMID [Suspect]
     Indication: MULTIPLE MYELOMA
     Dosage: 12.5 MILLIGRAM
     Route: 048
     Dates: start: 20120308, end: 20120319
  4. DEXAMETHASONE [Concomitant]
     Route: 065
     Dates: start: 20110701
  5. CLODRONATE DISODIUM [Concomitant]
     Route: 065
     Dates: start: 20110701

REACTIONS (1)
  - MULTIPLE MYELOMA [None]
